FAERS Safety Report 7028173-5 (Version None)
Quarter: 2010Q3

REPORT INFORMATION
  Report Type: 
  Country: None (occurrence: None)
  Receive Date: 20100930
  Receipt Date: 20100914
  Transmission Date: 20110219
  Serious: Yes (Death)
  Sender: FDA-Public Use
  Company Number: 2010US003968

PATIENT
  Age: 49 Year
  Sex: Male

DRUGS (1)
  1. MYCAMINE [Suspect]
     Indication: SEPSIS
     Dosage: 300 MG, /D

REACTIONS (1)
  - DEATH [None]
